FAERS Safety Report 7579094-0 (Version None)
Quarter: 2011Q2

REPORT INFORMATION
  Report Type: 
  Country: None (occurrence: None)
  Receive Date: 20110628
  Receipt Date: 20110621
  Transmission Date: 20111010
  Serious: Yes (Hospitalization, Disabling)
  Sender: FDA-Public Use
  Company Number: JP-PFIZER INC-2011093305

PATIENT
  Age: 75 Year
  Sex: Female
  Weight: 41 kg

DRUGS (5)
  1. RIFADIN [Concomitant]
     Indication: PULMONARY TUBERCULOSIS
     Dosage: 450 MG/DAY
     Route: 048
     Dates: start: 20071106, end: 20080728
  2. GABAPENTIN [Suspect]
     Indication: NEUROPATHY PERIPHERAL
     Dosage: 300 MG, 1X/DAY
     Route: 048
     Dates: start: 20080523, end: 20080619
  3. ISONIAZID [Suspect]
     Indication: PULMONARY TUBERCULOSIS
     Dosage: 300 MG/DAY
     Route: 048
     Dates: start: 20071106, end: 20080103
  4. ETHAMBUTOL HYDROCHLORIDE [Suspect]
     Indication: PULMONARY TUBERCULOSIS
     Dosage: DAILY DOSE OF 750 MG
     Route: 048
     Dates: start: 20071106, end: 20080728
  5. GABAPENTIN [Suspect]
     Dosage: 400 MG, 1X/DAY
     Route: 048
     Dates: start: 20080620, end: 20080704

REACTIONS (2)
  - VISUAL IMPAIRMENT [None]
  - HYPOAESTHESIA [None]
